FAERS Safety Report 14109953 (Version 1)
Quarter: 2017Q4

REPORT INFORMATION
  Report Type: Spontaneous
  Country: US (occurrence: US)
  Receive Date: 20171020
  Receipt Date: 20171020
  Transmission Date: 20180321
  Serious: No
  Sender: FDA-Public Use
  Company Number: US-TEVA-797945USA

PATIENT
  Sex: Female

DRUGS (1)
  1. MICONAZOLE. [Suspect]
     Active Substance: MICONAZOLE
     Route: 065
     Dates: start: 20170810

REACTIONS (2)
  - Burning sensation [Not Recovered/Not Resolved]
  - Discomfort [Unknown]

NARRATIVE: CASE EVENT DATE: 20170810
